FAERS Safety Report 20228031 (Version 4)
Quarter: 2022Q1

REPORT INFORMATION
  Report Type: Report from Study
  Country: AT (occurrence: AT)
  Receive Date: 20211224
  Receipt Date: 20220215
  Transmission Date: 20220424
  Serious: Yes (Other)
  Sender: FDA-Public Use
  Company Number: AT-INCYTE CORPORATION-2021IN011896

PATIENT

DRUGS (6)
  1. PEMAZYRE [Suspect]
     Active Substance: PEMIGATINIB
     Indication: Pancreatic carcinoma metastatic
     Dosage: 13.5 MILLIGRAM
     Route: 048
     Dates: start: 20210816, end: 20210829
  2. PEMAZYRE [Suspect]
     Active Substance: PEMIGATINIB
     Dosage: 13.5 MILLIGRAM
     Route: 048
     Dates: start: 20210906, end: 20210909
  3. PEMAZYRE [Suspect]
     Active Substance: PEMIGATINIB
     Dosage: 9 MILLIGRAM
     Route: 048
     Dates: start: 20210923, end: 20211006
  4. PEMAZYRE [Suspect]
     Active Substance: PEMIGATINIB
     Dosage: 9 MILLIGRAM
     Route: 048
     Dates: start: 20211013, end: 20211026
  5. PEMAZYRE [Suspect]
     Active Substance: PEMIGATINIB
     Dosage: 9 MILLIGRAM
     Route: 048
     Dates: start: 20211103, end: 20211116
  6. PEMAZYRE [Suspect]
     Active Substance: PEMIGATINIB
     Dosage: 9 MILLIGRAM
     Route: 048
     Dates: start: 20211124, end: 20211207

REACTIONS (6)
  - Chorioretinopathy [Recovered/Resolved]
  - Pancreatic carcinoma metastatic [Unknown]
  - Vertigo [Recovered/Resolved]
  - Gait disturbance [Recovered/Resolved]
  - Off label use [Unknown]
  - Disease progression [Unknown]

NARRATIVE: CASE EVENT DATE: 20210816
